FAERS Safety Report 11301523 (Version 1)
Quarter: 2015Q3

REPORT INFORMATION
  Report Type: Spontaneous
  Country: US (occurrence: US)
  Receive Date: 20150722
  Receipt Date: 20150722
  Transmission Date: 20151125
  Serious: No
  Sender: FDA-Public Use
  Company Number: US-ELI_LILLY_AND_COMPANY-US200912000835

PATIENT
  Sex: Female

DRUGS (3)
  1. HUMATROPE [Suspect]
     Active Substance: SOMATROPIN
     Indication: GROWTH HORMONE DEFICIENCY
     Dosage: 0.2 MG, EACH EVENING
     Dates: start: 2007, end: 200911
  2. CORTISONE [Concomitant]
     Active Substance: CORTISONE\HYDROCORTISONE
     Indication: ADDISON^S DISEASE
  3. HUMATROPE [Suspect]
     Active Substance: SOMATROPIN
     Dosage: 0.4 MG, EACH EVENING
     Dates: start: 200911

REACTIONS (4)
  - Dyspnoea [Not Recovered/Not Resolved]
  - Insulin-like growth factor decreased [Recovered/Resolved]
  - Fear [Not Recovered/Not Resolved]
  - Drug ineffective [Recovering/Resolving]
